FAERS Safety Report 21887778 (Version 1)
Quarter: 2023Q1

REPORT INFORMATION
  Report Type: Spontaneous
  Country: US (occurrence: US)
  Receive Date: 20230120
  Receipt Date: 20230120
  Transmission Date: 20230418
  Serious: No
  Sender: FDA-Public Use
  Company Number: US-APOTEX-2022AP015532

PATIENT
  Sex: Female

DRUGS (1)
  1. BALSALAZIDE DISODIUM [Suspect]
     Active Substance: BALSALAZIDE DISODIUM
     Indication: Crohn^s disease
     Dosage: 3 DOSAGE FORM, TID
     Route: 065
     Dates: start: 2022

REACTIONS (2)
  - Product odour abnormal [Unknown]
  - No adverse event [Unknown]

NARRATIVE: CASE EVENT DATE: 20220101
